FAERS Safety Report 7320949-X (Version None)
Quarter: 2011Q1

REPORT INFORMATION
  Report Type: 
  Country: None (occurrence: None)
  Receive Date: 20110228
  Receipt Date: 20110222
  Transmission Date: 20110831
  Serious: No
  Sender: FDA-Public Use
  Company Number: US-TEVA-268601USA

PATIENT
  Sex: Female

DRUGS (2)
  1. PLAN B ONE-STEP [Suspect]
     Indication: POST COITAL CONTRACEPTION
     Route: 048
     Dates: start: 20110116, end: 20110116
  2. PLAN B ONE-STEP [Suspect]
     Route: 048
     Dates: start: 20110212, end: 20110212

REACTIONS (2)
  - MENSTRUATION IRREGULAR [None]
  - MENORRHAGIA [None]
